FAERS Safety Report 17459117 (Version 2)
Quarter: 2020Q1

REPORT INFORMATION
  Report Type: Report from Study
  Country: KR (occurrence: KR)
  Receive Date: 20200225
  Receipt Date: 20200306
  Transmission Date: 20200409
  Serious: Yes (Hospitalization)
  Sender: FDA-Public Use
  Company Number: KR-SUNOVION-2020DSP002872

PATIENT
  Age: 26 Year
  Sex: Male

DRUGS (19)
  1. BLINDED LURASIDONE HYDROCHLORIDE [Suspect]
     Active Substance: LURASIDONE HYDROCHLORIDE
     Dosage: UNK
     Route: 048
     Dates: start: 20200215, end: 20200216
  2. ATIVAN [Concomitant]
     Active Substance: LORAZEPAM
     Indication: ANXIETY
     Dosage: 1.5 MG, TID
     Route: 048
     Dates: start: 20200215, end: 20200216
  3. DEPAKOTE ER [Concomitant]
     Active Substance: DIVALPROEX SODIUM
     Dosage: 250 MG, QD
     Route: 048
     Dates: start: 20200218
  4. INDENOL [Concomitant]
     Active Substance: PROPRANOLOL HYDROCHLORIDE
     Indication: PSYCHOTIC SYMPTOM
     Dosage: 60 MG, TID
     Route: 048
     Dates: start: 20200217
  5. LONASEN [Concomitant]
     Active Substance: BLONANSERIN
     Indication: PSYCHOTIC SYMPTOM
     Dosage: 16 MG, BID
     Route: 048
     Dates: start: 20200215, end: 20200216
  6. DEPAKOTE ER [Concomitant]
     Active Substance: DIVALPROEX SODIUM
     Indication: PSYCHOTIC SYMPTOM
     Dosage: 500 MG, QD
     Route: 048
     Dates: start: 20200217, end: 20200217
  7. ATIVAN [Concomitant]
     Active Substance: LORAZEPAM
     Dosage: 2 MG, BID
     Route: 048
     Dates: start: 20200217, end: 20200217
  8. LONASEN [Concomitant]
     Active Substance: BLONANSERIN
     Dosage: 8 MG, QD
     Route: 048
     Dates: start: 20200218
  9. ATIVAN [Concomitant]
     Active Substance: LORAZEPAM
     Dosage: 1 MG, BID
     Route: 048
     Dates: start: 20200218
  10. BENZTROPINE. [Concomitant]
     Active Substance: BENZTROPINE
     Indication: PSYCHOTIC SYMPTOM
     Dosage: 1 MG, QD
     Route: 048
     Dates: start: 20200217
  11. DEPAKOTE ER [Concomitant]
     Active Substance: DIVALPROEX SODIUM
     Indication: PSYCHOTIC SYMPTOM
     Dosage: 500 MG, QD
     Route: 048
     Dates: start: 20200218
  12. BLINDED QUETIAPINE [Suspect]
     Active Substance: QUETIAPINE
     Dosage: UNK
     Route: 048
     Dates: start: 20200215, end: 20200216
  13. LONASEN [Concomitant]
     Active Substance: BLONANSERIN
     Dosage: 16 MG, QD
     Route: 048
     Dates: start: 20200218
  14. BLINDED LURASIDONE HYDROCHLORIDE [Suspect]
     Active Substance: LURASIDONE HYDROCHLORIDE
     Indication: SCHIZOPHRENIA
     Dosage: UNK
     Route: 048
     Dates: start: 20200210, end: 20200214
  15. BLINDED QUETIAPINE [Suspect]
     Active Substance: QUETIAPINE
     Indication: SCHIZOPHRENIA
     Dosage: UNK
     Route: 048
     Dates: start: 20200210, end: 20200214
  16. ATIVAN [Concomitant]
     Active Substance: LORAZEPAM
     Indication: ANXIETY
     Dosage: 1.5 MG, TID
     Route: 048
     Dates: start: 20200205, end: 20200214
  17. ATIVAN [Concomitant]
     Active Substance: LORAZEPAM
     Dosage: 0.5 MG, QD
     Route: 048
     Dates: start: 20200217, end: 20200217
  18. LONASEN [Concomitant]
     Active Substance: BLONANSERIN
     Dosage: 12 MG, QD
     Route: 048
     Dates: start: 20200217, end: 20200217
  19. ATIVAN [Concomitant]
     Active Substance: LORAZEPAM
     Indication: ANXIETY
     Dosage: 1 MG, QD
     Route: 048
     Dates: start: 20200218

REACTIONS (1)
  - Psychotic symptom [Not Recovered/Not Resolved]

NARRATIVE: CASE EVENT DATE: 20200215
